FAERS Safety Report 8845890 (Version 1)
Quarter: 2012Q4

REPORT INFORMATION
  Report Type: 
  Country: US (occurrence: US)
  Receive Date: 20121017
  Receipt Date: 20121017
  Transmission Date: 20130627
  Serious: No
  Sender: FDA-Public Use
  Company Number: US-009507513-2011SP010462

PATIENT

DRUGS (3)
  1. ASMANEX TWISTHALER [Suspect]
     Dosage: 220 ?g, QD
     Route: 055
     Dates: start: 20110211, end: 20110307
  2. ASMANEX TWISTHALER [Suspect]
     Dosage: UNK
     Dates: end: 201208
  3. ASMANEX TWISTHALER [Suspect]
     Dosage: UNK
     Dates: start: 20120918

REACTIONS (3)
  - Dizziness [Recovering/Resolving]
  - Throat tightness [Recovering/Resolving]
  - Asthma [Unknown]
